FAERS Safety Report 5418363-7 (Version None)
Quarter: 2007Q3

REPORT INFORMATION
  Report Type: 
  Country: None (occurrence: None)
  Receive Date: 20070817
  Receipt Date: 20070815
  Transmission Date: 20080115
  Serious: Yes (Disabling)
  Sender: FDA-Public Use
  Company Number: CH-SANOFI-SYNTHELABO-A01200708852

PATIENT
  Sex: Male
  Weight: 76 kg

DRUGS (4)
  1. CHLORTHALIDONE [Concomitant]
  2. PHENPROCOUMON [Concomitant]
  3. AMIODARONE HYDROCHLORIDE [Concomitant]
  4. ELIGARD [Suspect]
     Indication: PROSTATE CANCER
     Route: 058
     Dates: start: 20060801

REACTIONS (1)
  - FAT TISSUE INCREASED [None]
